FAERS Safety Report 9596872 (Version 1)
Quarter: 2013Q4

REPORT INFORMATION
  Report Type: Spontaneous
  Country: SK (occurrence: SK)
  Receive Date: 20131004
  Receipt Date: 20131004
  Transmission Date: 20140711
  Serious: Yes (Death, Other)
  Sender: FDA-Public Use
  Company Number: SK-WATSON-2013-17194

PATIENT
  Sex: 0

DRUGS (2)
  1. TRIMETHOPRIM-SULFAMETHOXAZOLE (UNKNOWN) [Suspect]
     Indication: URINARY TRACT INFECTION
     Dosage: 480 MG, BID
     Route: 065
  2. LEVONORGESTREL [Concomitant]
     Indication: PRODUCT USED FOR UNKNOWN INDICATION
     Dosage: 1500 MG, SINGLE
     Route: 065

REACTIONS (2)
  - Sirenomelia [Fatal]
  - Foetal exposure during pregnancy [Unknown]
